FAERS Safety Report 9051417 (Version 1)
Quarter: 2013Q1

REPORT INFORMATION
  Report Type: Spontaneous
  Country: US (occurrence: US)
  Receive Date: 20130206
  Receipt Date: 20130206
  Transmission Date: 20140127
  Serious: No
  Sender: FDA-Public Use
  Company Number: US-ALLERGAN-1207160US

PATIENT
  Age: 79 Year
  Sex: Female

DRUGS (4)
  1. RESTASIS [Suspect]
     Indication: SJOGREN^S SYNDROME
     Dosage: 2 GTT, UNK
     Route: 047
     Dates: start: 20120510, end: 20120515
  2. RESTASIS [Suspect]
     Indication: DRY EYE
     Dosage: 2 GTT, BID
     Route: 047
     Dates: start: 20120515, end: 20120516
  3. KEPPRA [Concomitant]
     Indication: CONVULSION
     Dosage: 1 UNK, UNK
     Route: 048
  4. ARMOUR THYROID [Concomitant]
     Indication: HYPOTHYROIDISM
     Dosage: UNK
     Route: 048

REACTIONS (4)
  - Skin mass [Unknown]
  - Musculoskeletal pain [Recovering/Resolving]
  - Dizziness [Recovering/Resolving]
  - Headache [Recovering/Resolving]
